FAERS Safety Report 4815939-2 (Version None)
Quarter: 2005Q4

REPORT INFORMATION
  Report Type: 
  Country: None (occurrence: None)
  Receive Date: 20051031
  Receipt Date: 20051025
  Transmission Date: 20060501
  Serious: Yes (Hospitalization)
  Sender: FDA-Public Use
  Company Number: US-SANOFI-SYNTHELABO-F03200500161

PATIENT
  Sex: Male

DRUGS (18)
  1. ELOXATIN [Suspect]
     Indication: COLORECTAL CANCER
     Route: 042
  2. FLUOROURACIL [Suspect]
     Indication: COLORECTAL CANCER
     Route: 042
  3. AVASTIN [Suspect]
     Indication: COLORECTAL CANCER
     Route: 042
     Dates: start: 20050413, end: 20050413
  4. RADIATION THERAPY [Concomitant]
     Route: 065
     Dates: end: 20050210
  5. LIPITOR [Concomitant]
     Dosage: UNK
     Route: 065
  6. PHENYTOIN [Concomitant]
     Dosage: UNK
     Route: 065
  7. ECOTRIN [Concomitant]
     Dosage: UNK
     Route: 065
  8. ZETIA [Concomitant]
     Dosage: UNK
     Route: 065
  9. SKELAXIN [Concomitant]
     Dosage: UNK
     Route: 065
  10. NORTRIPTYLINE HCL [Concomitant]
     Dosage: UNK
     Route: 065
  11. DECADRON [Concomitant]
     Dosage: UNK
     Route: 065
  12. ALOXI [Concomitant]
     Dosage: UNK
     Route: 065
  13. OXYCONTIN [Concomitant]
     Dosage: UNK
     Route: 065
  14. LACTULOSE [Concomitant]
     Dosage: UNK
     Route: 065
  15. MILK OF MAGNESIA TAB [Concomitant]
     Dosage: UNK
     Route: 065
  16. LEUCOVORIN [Concomitant]
     Route: 042
  17. PEPCID [Concomitant]
     Dosage: UNK
     Route: 065
  18. TOPROL-XL [Concomitant]
     Dosage: UNK
     Route: 065

REACTIONS (3)
  - ANAL ULCER [None]
  - CONSTIPATION [None]
  - WEIGHT DECREASED [None]
